FAERS Safety Report 6311725-5 (Version None)
Quarter: 2009Q3

REPORT INFORMATION
  Report Type: 
  Country: None (occurrence: None)
  Receive Date: 20090813
  Receipt Date: 20090813
  Transmission Date: 20100115
  Serious: Yes (Other)
  Sender: FDA-Public Use
  Company Number: None

PATIENT
  Sex: Female
  Weight: 90.7194 kg

DRUGS (10)
  1. PREMARIN [Suspect]
     Indication: HOT FLUSH
     Dosage: 0-3 MG DAILY ORAL
     Route: 048
     Dates: start: 20090714, end: 20090730
  2. AMITRIPTYLINE HCL [Concomitant]
  3. LEVOTHYROXINE SODIUM [Concomitant]
  4. SERTRALINE [Concomitant]
  5. RANITIDINE [Concomitant]
  6. VITAMINS [Concomitant]
  7. CALCIUM [Concomitant]
  8. VIT D [Concomitant]
  9. ASPIRIN [Concomitant]
  10. TYLENOL (CAPLET) [Concomitant]

REACTIONS (4)
  - AMNESIA [None]
  - CONFUSIONAL STATE [None]
  - DIZZINESS [None]
  - VISION BLURRED [None]
